FAERS Safety Report 15628579 (Version 4)
Quarter: 2018Q4

REPORT INFORMATION
  Report Type: Spontaneous
  Country: HU (occurrence: HU)
  Receive Date: 20181116
  Receipt Date: 20181216
  Transmission Date: 20190205
  Serious: Yes (Death, Other)
  Sender: FDA-Public Use
  Company Number: PHHY2018HU157093

PATIENT
  Age: 17 Year
  Sex: Male

DRUGS (7)
  1. ETOPOSIDE. [Suspect]
     Active Substance: ETOPOSIDE
     Indication: X-LINKED LYMPHOPROLIFERATIVE SYNDROME
     Route: 065
  2. METHOTREXATE. [Suspect]
     Active Substance: METHOTREXATE
     Indication: X-LINKED LYMPHOPROLIFERATIVE SYNDROME
     Route: 065
  3. METHYLPREDNISOLONE. [Concomitant]
     Active Substance: METHYLPREDNISOLONE
     Indication: IMMUNE THROMBOCYTOPENIC PURPURA
     Route: 065
  4. METHYLPREDNISOLONE. [Concomitant]
     Active Substance: METHYLPREDNISOLONE
     Indication: INFECTIOUS MONONUCLEOSIS
  5. CICLOSPORIN [Suspect]
     Active Substance: CYCLOSPORINE
     Indication: X-LINKED LYMPHOPROLIFERATIVE SYNDROME
     Route: 065
  6. RITUXIMAB. [Suspect]
     Active Substance: RITUXIMAB
     Indication: X-LINKED LYMPHOPROLIFERATIVE SYNDROME
     Route: 065
  7. DEXAMETHASONE. [Suspect]
     Active Substance: DEXAMETHASONE
     Indication: X-LINKED LYMPHOPROLIFERATIVE SYNDROME
     Route: 065

REACTIONS (10)
  - Lymphadenopathy [Unknown]
  - Acute kidney injury [Unknown]
  - Haemophagocytic lymphohistiocytosis [Unknown]
  - Product use in unapproved indication [Unknown]
  - Splenomegaly [Unknown]
  - Haemorrhage [Unknown]
  - Death [Fatal]
  - Pneumonia [Unknown]
  - Hepatic necrosis [Unknown]
  - Lymphocytic infiltration [Unknown]
